FAERS Safety Report 5803104-1 (Version None)
Quarter: 2008Q2

REPORT INFORMATION
  Report Type: 
  Country: None (occurrence: None)
  Receive Date: 20080626
  Receipt Date: 20070924
  Transmission Date: 20081010
  Serious: Yes (Hospitalization)
  Sender: FDA-Public Use
  Company Number: VISP-PR-0709S-0430

PATIENT
  Age: 68 Year
  Sex: Female

DRUGS (1)
  1. VISIPAQUE [Suspect]
     Indication: DRUG USE FOR UNKNOWN INDICATION
     Dosage: 125 ML, SINGLE DOSE, I.V.
     Route: 042
     Dates: start: 20070905, end: 20070905

REACTIONS (1)
  - ANAPHYLACTOID REACTION [None]
